FAERS Safety Report 17368911 (Version 1)
Quarter: 2020Q1

REPORT INFORMATION
  Report Type: Spontaneous
  Country: US (occurrence: US)
  Receive Date: 20200204
  Receipt Date: 20200204
  Transmission Date: 20200409
  Serious: No
  Sender: FDA-Public Use
  Company Number: US-TEVA-2020-US-1178308

PATIENT
  Age: 71 Year

DRUGS (1)
  1. PREGABALIN. [Suspect]
     Active Substance: PREGABALIN
     Dosage: 150 MILLIGRAM DAILY; TAKE 1 CAPSULE BY MOUTH TWICE DAILY
     Route: 048

REACTIONS (8)
  - Headache [Unknown]
  - Hot flush [Unknown]
  - Dizziness [Unknown]
  - Feeling hot [Unknown]
  - Vision blurred [Unknown]
  - Paraesthesia [Unknown]
  - Nausea [Unknown]
  - Feeling abnormal [Unknown]
